FAERS Safety Report 9021129 (Version 1)
Quarter: 2013Q1

REPORT INFORMATION
  Report Type: Spontaneous
  Country: US (occurrence: US)
  Receive Date: 20130119
  Receipt Date: 20130119
  Transmission Date: 20140127
  Serious: No
  Sender: FDA-Public Use
  Company Number: US-ALLERGAN-1204010US

PATIENT
  Age: 37 Year
  Sex: Female

DRUGS (5)
  1. BOTOX? [Suspect]
     Indication: HYPERHIDROSIS
     Dosage: 100 UNITS, SINGLE
     Route: 030
     Dates: start: 20110810, end: 20110810
  2. BOTOX? [Suspect]
     Dosage: 100 UNITS, SINGLE
     Route: 030
     Dates: start: 20120222, end: 20120222
  3. ASTEPRO NASAL SPRAY [Concomitant]
     Indication: HYPERSENSITIVITY
     Dosage: UNK
     Route: 045
  4. VICODIN [Concomitant]
     Indication: PRODUCT USED FOR UNKNOWN INDICATION
  5. SKELXIN [Concomitant]
     Indication: PRODUCT USED FOR UNKNOWN INDICATION

REACTIONS (5)
  - Diffuse alopecia [Unknown]
  - Vitamin D decreased [Unknown]
  - Hair growth abnormal [Unknown]
  - Hair disorder [Unknown]
  - Alopecia [Not Recovered/Not Resolved]
